FAERS Safety Report 6780974-4 (Version None)
Quarter: 2010Q2

REPORT INFORMATION
  Report Type: 
  Country: None (occurrence: None)
  Receive Date: 20100615
  Receipt Date: 20100531
  Transmission Date: 20101027
  Serious: Yes (Other)
  Sender: FDA-Public Use
  Company Number: 167-20484-09111581

PATIENT
  Sex: Female
  Weight: 1.75 kg

DRUGS (16)
  1. INNOHEP [Suspect]
     Indication: DRUG EXPOSURE DURING PREGNANCY
     Dosage: TRANSPLACENTAL
     Route: 064
     Dates: start: 20020812, end: 20030206
  2. FUROSEMIDE [Concomitant]
  3. PROCHLORPERAZINE MALEATE [Concomitant]
  4. FOLIC ACID [Concomitant]
  5. FERROUS SULFATE TAB [Concomitant]
  6. ACETAMINOPHEN [Concomitant]
  7. AMOXICILLIN [Concomitant]
  8. CEPHALEXIN [Concomitant]
  9. RANITIDINE [Concomitant]
  10. METOCLOPRAMIDE (METOCLOPRAMIDE) [Concomitant]
  11. SODIUM CITRATE [Concomitant]
  12. AUGMENTIN '125' [Concomitant]
  13. METARAMINOL (METARAMINOL) [Concomitant]
  14. BUPIVACAINE (BUPIVACAINE) [Concomitant]
  15. DIAMORPHINE (DIAMORPHINE) [Concomitant]
  16. ASPIRIN [Concomitant]

REACTIONS (3)
  - CAESAREAN SECTION [None]
  - MATERNAL DRUGS AFFECTING FOETUS [None]
  - PREMATURE BABY [None]
